FAERS Safety Report 14035347 (Version 1)
Quarter: 2017Q4

REPORT INFORMATION
  Report Type: Spontaneous
  Country: US (occurrence: US)
  Receive Date: 20171003
  Receipt Date: 20171003
  Transmission Date: 20180321
  Serious: No
  Sender: FDA-Public Use
  Company Number: US-BAYER-2017-189091

PATIENT
  Age: 75 Year
  Sex: Male
  Weight: 131.97 kg

DRUGS (3)
  1. MIRALAX [Suspect]
     Active Substance: POLYETHYLENE GLYCOL 3350
     Indication: COLONOSCOPY
  2. FLAXSEED [Concomitant]
     Active Substance: FLAX SEED
  3. MIRALAX [Suspect]
     Active Substance: POLYETHYLENE GLYCOL 3350
     Indication: GASTROINTESTINAL DISORDER
     Dosage: 3 DF, QD
     Route: 048
     Dates: end: 20171001

REACTIONS (5)
  - Product use in unapproved indication [Unknown]
  - Abdominal distension [Unknown]
  - Discomfort [Unknown]
  - Off label use [Unknown]
  - Flatulence [Unknown]
